FAERS Safety Report 25915189 (Version 1)
Quarter: 2025Q4

REPORT INFORMATION
  Report Type: Spontaneous
  Country: JP (occurrence: JP)
  Receive Date: 20251013
  Receipt Date: 20251013
  Transmission Date: 20260119
  Serious: Yes (Other)
  Sender: SANDOZ
  Company Number: JP-MLMSERVICE-20251002-PI619169-00218-2

PATIENT
  Age: 43 Year
  Sex: Female

DRUGS (9)
  1. METHOTREXATE [Suspect]
     Active Substance: METHOTREXATE
     Indication: Acute lymphocytic leukaemia recurrent
     Dosage: 5 MG (1 WEEK)
     Route: 037
     Dates: end: 2022
  2. METHOTREXATE [Suspect]
     Active Substance: METHOTREXATE
     Indication: Central nervous system leukaemia
  3. CYTARABINE [Concomitant]
     Active Substance: CYTARABINE
     Indication: Central nervous system leukaemia
     Dosage: 20 MG , REDUCED
     Route: 037
     Dates: end: 2022
  4. CYTARABINE [Concomitant]
     Active Substance: CYTARABINE
     Indication: Acute lymphocytic leukaemia recurrent
     Dosage: 40 MG
     Route: 037
     Dates: start: 202112
  5. DEXAMETHASONE [Concomitant]
     Active Substance: DEXAMETHASONE
     Indication: Central nervous system leukaemia
     Dosage: 3.3 MG , REDUCED
     Route: 037
     Dates: end: 2022
  6. DEXAMETHASONE [Concomitant]
     Active Substance: DEXAMETHASONE
     Indication: Acute lymphocytic leukaemia recurrent
     Dosage: 6.6 MG
     Route: 037
     Dates: start: 202112
  7. LEUCOVORIN [Concomitant]
     Active Substance: LEUCOVORIN\LEUCOVORIN CALCIUM
     Indication: Chemotherapy toxicity attenuation
     Dosage: 15 MG , 3 HOUR ,  LEUCOVORIN 15 MG WAS ADMINISTERED  INTRAVENOUSLY EVERY 3H FOR NINE DOSES  AND THEN
     Route: 042
  8. LEUCOVORIN [Concomitant]
     Active Substance: LEUCOVORIN\LEUCOVORIN CALCIUM
     Dosage: 15 MG , 6 HOUR ,  LEUCOVORIN 15 MG WAS ADMINISTERED  INTRAVENOUSLY EVERY 3H FOR NINE DOSES  AND THEN
     Route: 042
  9. LEUCOVORIN [Concomitant]
     Active Substance: LEUCOVORIN\LEUCOVORIN CALCIUM
     Dosage: 6 HOUR , LEUCOVORIN ORALLY EVERY 6 H FOR FOUR DAYS
     Route: 048
     Dates: start: 2022

REACTIONS (1)
  - Myelopathy [Recovering/Resolving]

NARRATIVE: CASE EVENT DATE: 20220101
